FAERS Safety Report 9494894 (Version 2)
Quarter: 2014Q1

REPORT INFORMATION
  Report Type: Spontaneous
  Country: US (occurrence: US)
  Receive Date: 20130903
  Receipt Date: 20140115
  Transmission Date: 20141002
  Serious: Yes (Other)
  Sender: FDA-Public Use
  Company Number: US-PFIZER INC-2013252313

PATIENT
  Sex: Female

DRUGS (7)
  1. PRISTIQ [Suspect]
     Dosage: 50 MG, UNK
  2. PRISTIQ [Suspect]
     Dosage: 100 MG, UNK
  3. PRISTIQ [Suspect]
     Dosage: 150 MG, UNK
  4. PRISTIQ [Suspect]
     Dosage: 100 MG, UNK
  5. NORVASC [Concomitant]
     Indication: BLOOD PRESSURE
     Dosage: UNK
  6. LISINOPRIL [Concomitant]
     Indication: BLOOD PRESSURE
     Dosage: UNK
  7. ABILIFY [Concomitant]
     Dosage: UNK

REACTIONS (8)
  - Hallucination [Unknown]
  - Headache [Unknown]
  - Drug ineffective [Unknown]
  - Drug withdrawal syndrome [Unknown]
  - Tooth disorder [Unknown]
  - Depression [Unknown]
  - Vomiting [Unknown]
  - Feeling abnormal [Unknown]
